FAERS Safety Report 5066279-0 (Version None)
Quarter: 2006Q3

REPORT INFORMATION
  Report Type: 
  Country: None (occurrence: None)
  Receive Date: 20060731
  Receipt Date: 20060731
  Transmission Date: 20061208
  Serious: Yes (Hospitalization)
  Sender: FDA-Public Use
  Company Number: None

PATIENT
  Sex: Female
  Weight: 73.8 kg

DRUGS (3)
  1. FLUDARABINE [Suspect]
     Indication: BONE MARROW CONDITIONING REGIMEN
     Dosage: 42 ONCE DAILY IV DRIP
     Route: 041
     Dates: start: 20060621, end: 20060625
  2. BUSULFAN [Suspect]
     Dosage: 214/161 ONCE DAILY IV DRIP
     Route: 041
     Dates: start: 20060622, end: 20060625
  3. CAMPATH [Suspect]
     Dosage: 20 ONCE DAILY IV DRIP
     Route: 041
     Dates: start: 20060621, end: 20060625

REACTIONS (14)
  - ASPIRATION [None]
  - ATELECTASIS [None]
  - ATRIAL FLUTTER [None]
  - ATRIOVENTRICULAR BLOCK [None]
  - BONE MARROW TRANSPLANT [None]
  - CARDIAC FAILURE CONGESTIVE [None]
  - DYSPNOEA [None]
  - ELECTROCARDIOGRAM T WAVE ABNORMAL [None]
  - FUNGAL INFECTION [None]
  - MYOCARDIAL INFARCTION [None]
  - MYOCARDIAL ISCHAEMIA [None]
  - PNEUMONIA [None]
  - PULMONARY OEDEMA [None]
  - TACHYCARDIA [None]
